FAERS Safety Report 5903639-7 (Version None)
Quarter: 2008Q3

REPORT INFORMATION
  Report Type: 
  Country: None (occurrence: None)
  Receive Date: 20080919
  Receipt Date: 20080827
  Transmission Date: 20090109
  Serious: No
  Sender: FDA-Public Use
  Company Number: US-WYE-H05761808

PATIENT
  Age: 50 Year
  Sex: Male

DRUGS (1)
  1. PRISTIQ [Suspect]
     Indication: DEPRESSION
     Dosage: 50 MG 1X PER 1 DAY, ORAL
     Route: 048
     Dates: start: 20080801, end: 20080822

REACTIONS (4)
  - ABNORMAL BEHAVIOUR [None]
  - BIPOLAR DISORDER [None]
  - ERECTION INCREASED [None]
  - MANIA [None]
